FAERS Safety Report 7710418-7 (Version None)
Quarter: 2011Q3

REPORT INFORMATION
  Report Type: 
  Country: None (occurrence: None)
  Receive Date: 20110825
  Receipt Date: 20110810
  Transmission Date: 20111222
  Serious: Yes (Hospitalization, Other)
  Sender: FDA-Public Use
  Company Number: US-ELI_LILLY_AND_COMPANY-US200910002889

PATIENT
  Sex: Female

DRUGS (12)
  1. CYMBALTA [Suspect]
     Indication: NEUROPATHY PERIPHERAL
     Dosage: 30 MG, QD
  2. FORTEO [Suspect]
     Dosage: 20 UG, DAILY (1/D)
     Route: 058
  3. FORTEO [Suspect]
     Dosage: 20 UG, QD
     Route: 058
     Dates: end: 20110101
  4. TYLENOL                                 /SCH/ [Concomitant]
  5. FORTEO [Suspect]
     Dosage: 20 UG, DAILY (1/D)
     Route: 058
  6. LASIX [Concomitant]
  7. FORTEO [Suspect]
     Dosage: 20 UG, DAILY (1/D)
     Route: 058
     Dates: start: 20100402
  8. ULTRAM [Concomitant]
  9. PROTONIX [Concomitant]
  10. POTASSIUM [Concomitant]
  11. FORTEO [Suspect]
     Indication: OSTEOPOROSIS
     Dosage: 20 UG, DAILY (1/D)
     Route: 058
     Dates: start: 20090903, end: 20100101
  12. VITAMIN TAB [Concomitant]

REACTIONS (8)
  - ABDOMINAL PAIN UPPER [None]
  - HIP FRACTURE [None]
  - NAUSEA [None]
  - ADENOCARCINOMA PANCREAS [None]
  - PELVIC FRACTURE [None]
  - FALL [None]
  - PRURITUS [None]
  - DIZZINESS [None]
